FAERS Safety Report 15365864 (Version 1)
Quarter: 2018Q3

REPORT INFORMATION
  Report Type: Spontaneous
  Country: US (occurrence: US)
  Receive Date: 20180910
  Receipt Date: 20180910
  Transmission Date: 20181010
  Serious: No
  Sender: FDA-Public Use
  Company Number: US-TEVA-2018-US-952718

PATIENT
  Age: 66 Year
  Sex: Female

DRUGS (2)
  1. CLONAZEPAM. [Suspect]
     Active Substance: CLONAZEPAM
     Indication: ANXIETY
     Route: 065
  2. CLONAZEPAM. [Suspect]
     Active Substance: CLONAZEPAM
     Indication: PANIC DISORDER

REACTIONS (11)
  - Anxiety [Unknown]
  - Ear disorder [Recovered/Resolved]
  - Feeling jittery [Unknown]
  - Heart rate irregular [Unknown]
  - Panic attack [Recovered/Resolved]
  - Asthenia [Unknown]
  - Restlessness [Not Recovered/Not Resolved]
  - Tremor [Recovered/Resolved]
  - Malaise [Not Recovered/Not Resolved]
  - Palpitations [Recovered/Resolved]
  - Tinnitus [Not Recovered/Not Resolved]

NARRATIVE: CASE EVENT DATE: 2016
